FAERS Safety Report 23936969 (Version 2)
Quarter: 2024Q2

REPORT INFORMATION
  Report Type: Report from Study
  Country: CA (occurrence: CA)
  Receive Date: 20240604
  Receipt Date: 20240612
  Transmission Date: 20240716
  Serious: Yes (Hospitalization)
  Sender: FDA-Public Use
  Company Number: CA-DRL-USA-CLI/CAN/24/0008074

PATIENT
  Age: 81 Year
  Sex: Female

DRUGS (1)
  1. ZOLEDRONIC ACID [Suspect]
     Active Substance: ZOLEDRONIC ACID
     Indication: Osteoporosis
     Dosage: YEARLY, ZOLEDRONIC ACID 5 MG / 100 ML
     Dates: start: 20220826, end: 20220826

REACTIONS (2)
  - Fracture [Unknown]
  - Keratomileusis [Unknown]
